FAERS Safety Report 25459739 (Version 1)
Quarter: 2025Q2

REPORT INFORMATION
  Report Type: Spontaneous
  Country: US (occurrence: US)
  Receive Date: 20250620
  Receipt Date: 20250620
  Transmission Date: 20250716
  Serious: No
  Sender: ABBVIE
  Company Number: US-ABBVIE-6333542

PATIENT
  Sex: Female

DRUGS (2)
  1. HUMIRA [Suspect]
     Active Substance: ADALIMUMAB
     Indication: Rheumatoid arthritis
     Route: 058
  2. HUMIRA [Suspect]
     Active Substance: ADALIMUMAB
     Route: 048
     Dates: start: 202408, end: 202504

REACTIONS (5)
  - Osteoarthritis [Unknown]
  - Therapeutic product effect incomplete [Unknown]
  - Pain [Unknown]
  - Bone pain [Unknown]
  - Fall [Unknown]
